FAERS Safety Report 9781526 (Version 3)
Quarter: 2014Q1

REPORT INFORMATION
  Report Type: Report from Study
  Country: CA (occurrence: CA)
  Receive Date: 20131224
  Receipt Date: 20140305
  Transmission Date: 20141002
  Serious: Yes (Other)
  Sender: FDA-Public Use
  Company Number: CA-BRISTOL-MYERS SQUIBB COMPANY-19793918

PATIENT
  Age: 55 Year
  Sex: Female

DRUGS (7)
  1. SPRYCEL [Suspect]
     Indication: CHRONIC MYELOID LEUKAEMIA
     Dosage: 10OCT2011-
     Dates: start: 201211
  2. IMATINIB MESILATE [Suspect]
     Dates: start: 201105
  3. PRAVASTATIN SODIUM [Concomitant]
  4. ACETYLSALICYLIC ACID [Concomitant]
  5. LASIX [Concomitant]
  6. ASPIRIN [Concomitant]
  7. LORAZEPAM [Concomitant]

REACTIONS (3)
  - Nephrotic syndrome [Not Recovered/Not Resolved]
  - Microangiopathy [Unknown]
  - Fluid retention [Unknown]
